FAERS Safety Report 6647003-4 (Version None)
Quarter: 2010Q1

REPORT INFORMATION
  Report Type: 
  Country: None (occurrence: None)
  Receive Date: 20100323
  Receipt Date: 20100312
  Transmission Date: 20100710
  Serious: Yes (Other)
  Sender: FDA-Public Use
  Company Number: IE-BAXTER-2010BH007160

PATIENT
  Age: 32 Year
  Sex: Male

DRUGS (2)
  1. SODIUM CHLORIDE 0.9% IN PLASTIC CONTAINER [Suspect]
     Indication: OSTEOMYELITIS
     Route: 042
     Dates: start: 20100305
  2. CLINDAMYCIN [Suspect]
     Indication: OSTEOMYELITIS
     Route: 042
     Dates: start: 20100305

REACTIONS (6)
  - CHEST PAIN [None]
  - EYE ROLLING [None]
  - HYPERHIDROSIS [None]
  - PALLOR [None]
  - SOMNOLENCE [None]
  - UNRESPONSIVE TO STIMULI [None]
